FAERS Safety Report 10153097 (Version 4)
Quarter: 2014Q2

REPORT INFORMATION
  Report Type: Spontaneous
  Country: BR (occurrence: BR)
  Receive Date: 20140505
  Receipt Date: 20140603
  Transmission Date: 20141212
  Serious: Yes (Hospitalization)
  Sender: FDA-Public Use
  Company Number: BR-BRISTOL-MYERS SQUIBB COMPANY-20671459

PATIENT
  Age: 67 Year
  Sex: Female
  Weight: 110 kg

DRUGS (22)
  1. COUMADIN TABS 5 MG [Suspect]
     Dosage: 16,17,18,19,20,21,22APR14
     Route: 050
     Dates: start: 20140415, end: 20140423
  2. HYDROCORTISONE [Interacting]
     Route: 042
     Dates: start: 20140421, end: 20140422
  3. SIMVASTATIN [Interacting]
     Route: 050
     Dates: start: 20140327, end: 20140423
  4. NEXIUM [Interacting]
     Route: 050
     Dates: start: 20140406, end: 20140423
  5. METFORMIN [Concomitant]
     Dosage: 8AM, 2PM, 5PM
     Route: 050
     Dates: start: 20140322, end: 20140422
  6. AMLODIPINE [Concomitant]
     Route: 050
     Dates: start: 20140320, end: 20140423
  7. METOPROLOL [Concomitant]
     Dosage: 8AM AND 8PM
     Route: 050
     Dates: start: 20140418, end: 20140423
  8. BROMOPRIDE [Concomitant]
     Dosage: 8AM,4+12PM
     Route: 050
     Dates: start: 20140402, end: 20140423
  9. SIMETICONE [Concomitant]
     Dosage: 8AM,4+12PM
     Route: 050
     Dates: start: 20140414, end: 20140423
  10. FOLIC ACID [Concomitant]
     Route: 050
     Dates: start: 20140325, end: 20140423
  11. PIDOMAG [Concomitant]
     Dosage: 1DF:1AMPOULE
     Route: 050
     Dates: start: 20140329, end: 20140423
  12. CLEXANE [Concomitant]
     Route: 058
     Dates: start: 20140323, end: 20140422
  13. SERTRALINE [Concomitant]
     Route: 050
     Dates: start: 20140322, end: 20140423
  14. LAMOTRIGINE [Concomitant]
     Dosage: 10AM,10PM
     Route: 050
     Dates: start: 20140402, end: 20140423
  15. ACETYLCYSTEINE [Concomitant]
     Route: 050
     Dates: start: 20140415, end: 20140423
  16. FUROSEMIDE [Concomitant]
     Dosage: AMPOULE 8AM+2PM
     Route: 042
     Dates: start: 20140411, end: 20140423
  17. FENOTEROL [Concomitant]
     Dosage: STR:0.5MG/ML,6AM,12AM,8PM,12PM,BROMIDE,VIA NEBULIZATION
     Dates: start: 20140420, end: 20140423
  18. IPRATROPIUM BROMIDE [Concomitant]
     Dosage: VIA NEBULIZATION
     Dates: start: 20140328, end: 20140423
  19. BUDENOSIDE [Concomitant]
     Dosage: 0.25MG/ML,8AM+PM,VIA NEBULIZATION
     Dates: start: 20140421, end: 20140423
  20. TERBUTALINE [Concomitant]
     Dosage: SRTN:0.5MG/ML
     Route: 058
     Dates: start: 20140420, end: 20140423
  21. INSULIN NPH [Concomitant]
     Route: 058
     Dates: start: 20140408, end: 20140423
  22. REGULAR INSULIN [Concomitant]
     Dosage: ADMINISTERED ACCORDING TO DEXTRO-TEST
     Dates: start: 20140408, end: 20140423

REACTIONS (2)
  - Drug ineffective [Unknown]
  - Drug interaction [Unknown]
